FAERS Safety Report 5742944-4 (Version None)
Quarter: 2008Q2

REPORT INFORMATION
  Report Type: 
  Country: None (occurrence: None)
  Receive Date: 20080519
  Receipt Date: 20080509
  Transmission Date: 20081010
  Serious: Yes (Other)
  Sender: FDA-Public Use
  Company Number: GB-ASTRAZENECA-2008GB00882

PATIENT
  Age: 70 Year
  Sex: Female

DRUGS (8)
  1. ATENOLOL [Suspect]
     Indication: HYPERTENSION
     Dosage: 50MG
     Route: 065
     Dates: start: 20060503, end: 20060503
  2. LACTIC ACID [Suspect]
     Dosage: 1 VIAL WITH 4ML WATER AND 1ML 2% LIGNOCAINE IN SALINE
     Route: 051
     Dates: start: 20060503, end: 20060503
  3. LACTIC ACID [Suspect]
     Dosage: 2 VIALS WITH 9ML WATER AND 2ML 2% LIGNOCAINE IN SALINE
     Route: 051
     Dates: start: 20060630, end: 20060630
  4. LACTIC ACID [Suspect]
     Dosage: 1 VIAL WITH 5ML WATER AND 2ML 2% LIGNOCAINE IN SALINE
     Route: 051
     Dates: start: 20061011, end: 20061011
  5. LACTIC ACID [Suspect]
     Dosage: 2 VIALS WITH 10ML WATER AND 3ML 2% LIGNOCAINE IN SALINE
     Route: 051
     Dates: start: 20071106, end: 20071106
  6. BENDROFLUAZIDE [Concomitant]
     Indication: HYPERTENSION
     Dosage: 2.5MG
     Route: 065
  7. ISTIN [Concomitant]
     Route: 065
  8. PERINDOPRIL ERBUMINE [Concomitant]
     Indication: HYPERTENSION
     Dosage: 8MG
     Route: 048
     Dates: start: 20040101

REACTIONS (4)
  - ABSCESS [None]
  - GRANULOMA SKIN [None]
  - INJECTION SITE NODULE [None]
  - KELOID SCAR [None]
